FAERS Safety Report 16461937 (Version 1)
Quarter: 2019Q2

REPORT INFORMATION
  Report Type: Spontaneous
  Country: FR (occurrence: FR)
  Receive Date: 20190621
  Receipt Date: 20190621
  Transmission Date: 20190711
  Serious: Yes (Other)
  Sender: FDA-Public Use
  Company Number: FR-TEVA-2019-FR-1066661

PATIENT
  Age: 72 Year
  Sex: Male
  Weight: 92 kg

DRUGS (1)
  1. PACLITAXEL. [Suspect]
     Active Substance: PACLITAXEL
     Indication: BRONCHIAL CARCINOMA
     Route: 042
     Dates: start: 20190424, end: 20190424

REACTIONS (1)
  - Infusion site hypersensitivity [Recovered/Resolved]

NARRATIVE: CASE EVENT DATE: 20190424
